FAERS Safety Report 9611262 (Version 2)
Quarter: 2013Q4

REPORT INFORMATION
  Report Type: Spontaneous
  Country: NL (occurrence: NL)
  Receive Date: 20131010
  Receipt Date: 20131122
  Transmission Date: 20140711
  Serious: Yes (Death, Hospitalization)
  Sender: FDA-Public Use
  Company Number: NL-AMGEN-NLDSP2013070102

PATIENT
  Age: 38 Year
  Sex: Male

DRUGS (2)
  1. ARANESP [Suspect]
     Indication: NEOPLASM
     Dosage: 500 MG, Q3WK
     Route: 058
  2. NEULASTA [Concomitant]

REACTIONS (2)
  - Death [Fatal]
  - Hospitalisation [Fatal]
